FAERS Safety Report 7091049-1 (Version None)
Quarter: 2010Q4

REPORT INFORMATION
  Report Type: 
  Country: None (occurrence: None)
  Receive Date: 20101109
  Receipt Date: 20101102
  Transmission Date: 20110411
  Serious: Yes (Hospitalization)
  Sender: FDA-Public Use
  Company Number: JP-SANOFI-AVENTIS-2010SA067235

PATIENT
  Age: 37 Year
  Sex: Male
  Weight: 66 kg

DRUGS (7)
  1. PLAVIX [Suspect]
     Indication: MYOCARDIAL ISCHAEMIA
     Route: 048
     Dates: start: 20100104
  2. ASPIRIN [Concomitant]
     Route: 048
     Dates: start: 20100104
  3. HEPARIN SODIUM [Concomitant]
     Route: 042
     Dates: start: 20100104, end: 20100117
  4. TAKEPRON [Concomitant]
     Route: 048
     Dates: start: 20100104
  5. LIPITOR [Concomitant]
     Indication: HYPERLIPIDAEMIA
     Route: 048
     Dates: start: 20100104, end: 20100216
  6. CRESTOR [Concomitant]
     Indication: HYPERLIPIDAEMIA
     Route: 048
     Dates: start: 20100217
  7. WARFARIN [Concomitant]
     Route: 048
     Dates: start: 20100122

REACTIONS (1)
  - IN-STENT CORONARY ARTERY RESTENOSIS [None]
